FAERS Safety Report 15003348 (Version 1)
Quarter: 2018Q2

REPORT INFORMATION
  Report Type: Spontaneous
  Country: JP (occurrence: JP)
  Receive Date: 20180613
  Receipt Date: 20180613
  Transmission Date: 20180711
  Serious: Yes (Hospitalization, Other)
  Sender: FDA-Public Use
  Company Number: JP-SUN PHARMACEUTICAL INDUSTRIES LTD-2018RR-175506

PATIENT
  Age: 33 Year
  Sex: Male

DRUGS (6)
  1. CARBOCISTEINE [Interacting]
     Active Substance: CARBOCYSTEINE
     Indication: FATIGUE
  2. DICLOFENAC [Interacting]
     Active Substance: DICLOFENAC
     Indication: FATIGUE
  3. CARBOCISTEINE [Interacting]
     Active Substance: CARBOCYSTEINE
     Indication: RHINORRHOEA
  4. DICLOFENAC [Suspect]
     Active Substance: DICLOFENAC
     Indication: PYREXIA
     Route: 065
  5. DICLOFENAC [Interacting]
     Active Substance: DICLOFENAC
     Indication: RHINORRHOEA
  6. CARBOCISTEINE [Interacting]
     Active Substance: CARBOCYSTEINE
     Indication: PYREXIA
     Route: 065

REACTIONS (2)
  - Stevens-Johnson syndrome [Unknown]
  - Drug interaction [Unknown]
